FAERS Safety Report 8305137-2 (Version None)
Quarter: 2012Q2

REPORT INFORMATION
  Report Type: 
  Country: None (occurrence: None)
  Receive Date: 20120423
  Receipt Date: 20120409
  Transmission Date: 20120825
  Serious: No
  Sender: FDA-Public Use
  Company Number: US-ENDO PHARMACEUTICALS INC.-OPCR20120196

PATIENT
  Sex: Male

DRUGS (5)
  1. OPANA ER [Suspect]
     Indication: BACK PAIN
     Route: 048
     Dates: start: 20120101
  2. OPANA ER [Suspect]
     Indication: ARTHRALGIA
  3. OPANA ER [Concomitant]
     Indication: BACK PAIN
     Route: 048
     Dates: start: 20080101, end: 20120101
  4. OPANA ER [Concomitant]
     Indication: ARTHRALGIA
  5. OPANA [Concomitant]
     Indication: PAIN
     Dosage: 10 MG
     Route: 048

REACTIONS (3)
  - DRUG EFFECT DECREASED [None]
  - SPUTUM RETENTION [None]
  - GASTROOESOPHAGEAL REFLUX DISEASE [None]
